FAERS Safety Report 16959304 (Version 1)
Quarter: 2019Q4

REPORT INFORMATION
  Report Type: Spontaneous
  Country: GR (occurrence: GR)
  Receive Date: 20191025
  Receipt Date: 20191025
  Transmission Date: 20200122
  Serious: Yes (Other)
  Sender: FDA-Public Use
  Company Number: GR-ASTRAZENECA-2019SF48611

PATIENT
  Age: 82 Year
  Sex: Female

DRUGS (1)
  1. LOSEC [Suspect]
     Active Substance: OMEPRAZOLE
     Indication: GASTROINTESTINAL ULCER
     Dosage: 20 MG P.O. BID (MORNING-EVENING)
     Route: 048
     Dates: start: 201907

REACTIONS (2)
  - Gastric haemorrhage [Unknown]
  - Diarrhoea [Unknown]
